FAERS Safety Report 7817642-3 (Version None)
Quarter: 2011Q4

REPORT INFORMATION
  Report Type: 
  Country: None (occurrence: None)
  Receive Date: 20111017
  Receipt Date: 20111014
  Transmission Date: 20120403
  Serious: Yes (Other)
  Sender: FDA-Public Use
  Company Number: PHHO2011PL17406

PATIENT
  Sex: Female
  Weight: 59 kg

DRUGS (2)
  1. FTY [Suspect]
     Indication: MULTIPLE SCLEROSIS
     Dosage: 0.5 MG, UNK
     Dates: start: 20100319, end: 20111013
  2. ANTEOVIN [Concomitant]
     Indication: CONTRACEPTION
     Dosage: UNK
     Dates: start: 20071229

REACTIONS (1)
  - BASAL CELL CARCINOMA [None]
